FAERS Safety Report 6766420-5 (Version None)
Quarter: 2010Q2

REPORT INFORMATION
  Report Type: 
  Country: None (occurrence: None)
  Receive Date: 20100611
  Receipt Date: 20100530
  Transmission Date: 20101027
  Serious: Yes (Other)
  Sender: FDA-Public Use
  Company Number: US-PFIZER INC-2010072073

PATIENT
  Sex: Female

DRUGS (4)
  1. LYRICA [Suspect]
     Dosage: 450 MG, 1X/DAY
     Route: 048
  2. KEPPRA [Suspect]
     Dosage: 750 MG, 2X/DAY
     Route: 048
  3. TEGRETOL [Suspect]
     Indication: EPILEPSY
     Dosage: UNK
  4. ATIVAN [Concomitant]
     Indication: SLEEP DISORDER
     Dosage: 2 MG, 1X/DAY
     Route: 048

REACTIONS (6)
  - BLINDNESS UNILATERAL [None]
  - CONVULSION [None]
  - DIZZINESS [None]
  - VIRAL INFECTION [None]
  - VISION BLURRED [None]
  - WEIGHT INCREASED [None]
